FAERS Safety Report 12800150 (Version 1)
Quarter: 2016Q3

REPORT INFORMATION
  Report Type: Spontaneous
  Country: US (occurrence: US)
  Receive Date: 20160930
  Receipt Date: 20160930
  Transmission Date: 20161109
  Serious: Yes (Other)
  Sender: FDA-Public Use
  Company Number: US-UNITED THERAPEUTICS-UNT-2016-014903

PATIENT
  Age: 44 Year
  Sex: Male
  Weight: 68.27 kg

DRUGS (3)
  1. REMODULIN [Suspect]
     Active Substance: TREPROSTINIL
     Indication: PULMONARY ARTERIAL HYPERTENSION
     Dosage: 0.0275 ?G/KG, UNK
     Route: 058
  2. ELIQUIS [Concomitant]
     Active Substance: APIXABAN
     Indication: PRODUCT USED FOR UNKNOWN INDICATION
  3. REMODULIN [Suspect]
     Active Substance: TREPROSTINIL
     Indication: PULMONARY HYPERTENSION
     Dosage: 0.030 ?G/KG, CONTINUING
     Route: 058
     Dates: start: 20160715

REACTIONS (7)
  - Presyncope [Unknown]
  - Headache [Unknown]
  - Dermatitis contact [Unknown]
  - Hypotension [Unknown]
  - Muscular weakness [Unknown]
  - Hypoaesthesia [Unknown]
  - Sinus disorder [Unknown]

NARRATIVE: CASE EVENT DATE: 201609
